FAERS Safety Report 4956527-7 (Version None)
Quarter: 2006Q1

REPORT INFORMATION
  Report Type: 
  Country: None (occurrence: None)
  Receive Date: 20060329
  Receipt Date: 20060320
  Transmission Date: 20060701
  Serious: Yes (Hospitalization)
  Sender: FDA-Public Use
  Company Number: US-MERCK-0603USA03180

PATIENT
  Age: 68 Year
  Sex: Female

DRUGS (8)
  1. VIOXX [Suspect]
     Indication: RHEUMATOID ARTHRITIS
     Route: 048
     Dates: start: 20020101, end: 20040701
  2. ALTACE [Concomitant]
     Route: 065
  3. ATIVAN [Concomitant]
     Route: 065
  4. ZYRTEC [Concomitant]
     Route: 065
  5. TUSSIONEX (CHLORPHENIRAMINE POLISTIREX (+) HYDROCODONE POLISTIREX) [Concomitant]
     Route: 065
  6. ZITHROMAX [Concomitant]
     Route: 065
  7. LORCET-HD [Concomitant]
     Route: 065
  8. AMARYL [Concomitant]
     Route: 065

REACTIONS (2)
  - CEREBROVASCULAR ACCIDENT [None]
  - HOSPITALISATION [None]
